FAERS Safety Report 26118698 (Version 1)
Quarter: 2025Q4

REPORT INFORMATION
  Report Type: Spontaneous
  Country: CN (occurrence: CN)
  Receive Date: 20251203
  Receipt Date: 20251203
  Transmission Date: 20260117
  Serious: Yes (Hospitalization)
  Sender: ELI LILLY AND COMPANY
  Company Number: CN-ELI_LILLY_AND_COMPANY-CN202512002024

PATIENT
  Sex: Male
  Weight: 60 kg

DRUGS (3)
  1. HUMULIN R [Suspect]
     Active Substance: INSULIN HUMAN
     Indication: Diabetes mellitus
     Dosage: 10 U, UNKNOWN
     Route: 058
     Dates: start: 2020, end: 2022
  2. HUMULIN R [Suspect]
     Active Substance: INSULIN HUMAN
     Dosage: 10 U, UNKNOWN
     Route: 058
     Dates: start: 2022, end: 202410
  3. HUMALOG [Suspect]
     Active Substance: INSULIN LISPRO
     Indication: Diabetes mellitus
     Dosage: 10 U, TID
     Route: 058
     Dates: start: 202410, end: 20251125

REACTIONS (4)
  - Diabetes mellitus inadequate control [Unknown]
  - Blood glucose decreased [Recovering/Resolving]
  - Product dose omission issue [Unknown]
  - Pruritus [Unknown]
